FAERS Safety Report 11038525 (Version 4)
Quarter: 2015Q2

REPORT INFORMATION
  Report Type: Report from Study
  Country: BE (occurrence: BE)
  Receive Date: 20150416
  Receipt Date: 20150609
  Transmission Date: 20150821
  Serious: Yes (Hospitalization)
  Sender: FDA-Public Use
  Company Number: BE-JNJFOC-20150405956

PATIENT
  Age: 48 Year
  Sex: Female
  Weight: 74 kg

DRUGS (3)
  1. PLACEBO [Suspect]
     Active Substance: UNSPECIFIED INGREDIENT
     Indication: DRUG LEVEL
     Route: 048
     Dates: start: 20150326, end: 20150402
  2. IBRUTINIB [Suspect]
     Active Substance: IBRUTINIB
     Route: 048
  3. IBRUTINIB [Suspect]
     Active Substance: IBRUTINIB
     Indication: DRUG LEVEL
     Route: 048
     Dates: start: 20150326, end: 20150402

REACTIONS (3)
  - Myalgia [Recovering/Resolving]
  - Abdominal pain upper [Recovering/Resolving]
  - Hepatic enzyme increased [Recovering/Resolving]

NARRATIVE: CASE EVENT DATE: 20150406
